FAERS Safety Report 7182747-X (Version None)
Quarter: 2010Q4

REPORT INFORMATION
  Report Type: 
  Country: None (occurrence: None)
  Receive Date: 20101221
  Receipt Date: 20100615
  Transmission Date: 20110411
  Serious: No
  Sender: FDA-Public Use
  Company Number: US-AMGEN-TCS410544

PATIENT

DRUGS (4)
  1. ENBREL [Suspect]
     Indication: PSORIASIS
     Dosage: 50 MG, QWK
     Route: 058
     Dates: start: 20080601
  2. METHOTREXATE [Concomitant]
     Dosage: 15 MG, QWK
     Dates: start: 20100322
  3. OMEPRAZOLE [Concomitant]
     Dosage: UNK UNK, UNK
  4. FOLIC ACID [Concomitant]
     Dosage: 1 MG, UNK
     Dates: start: 20100222

REACTIONS (5)
  - HYPOAESTHESIA [None]
  - INJECTION SITE ANAESTHESIA [None]
  - INJECTION SITE INJURY [None]
  - INJECTION SITE PAIN [None]
  - NEURALGIA [None]
